FAERS Safety Report 6213558-7 (Version None)
Quarter: 2009Q2

REPORT INFORMATION
  Report Type: 
  Country: None (occurrence: None)
  Receive Date: 20090603
  Receipt Date: 20090601
  Transmission Date: 20091009
  Serious: Yes (Life-Threatening, Hospitalization, Other)
  Sender: FDA-Public Use
  Company Number: GB-JNJFOC-20090504982

PATIENT
  Sex: Male
  Weight: 94.4 kg

DRUGS (1)
  1. RISPERDAL CONSTA [Suspect]
     Indication: SCHIZOPHRENIA
     Route: 030

REACTIONS (4)
  - DRUG INEFFECTIVE [None]
  - HALLUCINATION, AUDITORY [None]
  - SCHIZOPHRENIA [None]
  - SUICIDAL IDEATION [None]
